FAERS Safety Report 22353797 (Version 2)
Quarter: 2023Q2

REPORT INFORMATION
  Report Type: Spontaneous
  Country: US (occurrence: US)
  Receive Date: 20230523
  Receipt Date: 20230608
  Transmission Date: 20230722
  Serious: Yes (Other)
  Sender: FDA-Public Use
  Company Number: US-BAXTER-2023BAX022163

PATIENT
  Age: 14 Year
  Sex: Male

DRUGS (3)
  1. DOBUTAMINE [Suspect]
     Active Substance: DOBUTAMINE HYDROCHLORIDE
     Indication: Stress echocardiogram
     Dosage: TITRATION STARTING AT  STARTED AT DOSE OF 5 ?G/KG/MINUTE, FOLLOWED BY 3-MINUTE STAGES OF INCREASING
     Route: 065
  2. FUROSEMIDE [Suspect]
     Active Substance: FUROSEMIDE
     Indication: Left ventricular failure
     Dosage: 1 MG/KG/DOSE
     Route: 042
  3. SIROLIMUS [Concomitant]
     Active Substance: SIROLIMUS
     Indication: Immunosuppression
     Dosage: MONOTHERAPY
     Route: 065

REACTIONS (11)
  - Stress cardiomyopathy [Recovered/Resolved]
  - Ventricular extrasystoles [Recovered/Resolved]
  - Electrocardiogram ST segment elevation [Recovered/Resolved]
  - Ventricular hypokinesia [Recovered/Resolved]
  - Ejection fraction decreased [Recovered/Resolved]
  - Disease progression [Recovered/Resolved]
  - Ventricular hypokinesia [Recovered/Resolved]
  - Left ventricular end-diastolic pressure increased [Recovered/Resolved]
  - Heart valve incompetence [Recovered/Resolved]
  - Systolic dysfunction [Recovered/Resolved]
  - Left ventricular failure [Recovered/Resolved]
